FAERS Safety Report 10424549 (Version 1)
Quarter: 2014Q3

REPORT INFORMATION
  Report Type: Spontaneous
  Country: US (occurrence: None)
  Receive Date: 20140725
  Receipt Date: 20140725
  Transmission Date: 20150326
  Serious: No
  Sender: FDA-Public Use
  Company Number: AP356-00871-SPO-US

PATIENT
  Age: 43 Year
  Sex: Female

DRUGS (4)
  1. METFORMIN [Concomitant]
     Active Substance: METFORMIN HYDROCHLORIDE
  2. BLOOD PRESSURE PILL (ANTIHYPERTENSIVES) [Concomitant]
  3. BELVIQ [Suspect]
     Active Substance: LORCASERIN HYDROCHLORIDE
     Indication: WEIGHT DECREASED
     Route: 048
     Dates: start: 201404, end: 201405
  4. NOVOLIN (HUMAN MIXTARD) [Concomitant]

REACTIONS (1)
  - Intentional underdose [None]

NARRATIVE: CASE EVENT DATE: 20140527
